FAERS Safety Report 5550866-7 (Version None)
Quarter: 2007Q4

REPORT INFORMATION
  Report Type: 
  Country: None (occurrence: None)
  Receive Date: 20071210
  Receipt Date: 20071122
  Transmission Date: 20080405
  Serious: Yes (Other)
  Sender: FDA-Public Use
  Company Number: ENC200700201

PATIENT
  Age: 84 Year
  Sex: Male

DRUGS (4)
  1. ARGATROBAN [Suspect]
     Indication: THROMBOTIC CEREBRAL INFARCTION
     Dosage: 60 MG, INTRAVENOUS
     Route: 042
     Dates: start: 20071117, end: 20071119
  2. RADICUT (EDARAVONE) [Concomitant]
  3. NICHOLIN (CITICOLINE) [Concomitant]
  4. GLYCEOL (FRUCTOSE, GLYCEROL) [Concomitant]

REACTIONS (1)
  - HAEMORRHAGIC CEREBRAL INFARCTION [None]
